FAERS Safety Report 10927553 (Version 1)
Quarter: 2015Q1

REPORT INFORMATION
  Report Type: Spontaneous
  Country: US (occurrence: US)
  Receive Date: 20150318
  Receipt Date: 20150318
  Transmission Date: 20150721
  Serious: Yes (Hospitalization, Other)
  Sender: FDA-Public Use
  Company Number: US-009507513-0407USA02221

PATIENT
  Age: 80 Year
  Sex: Male

DRUGS (4)
  1. ASPIRIN. [Concomitant]
     Active Substance: ASPIRIN
     Dosage: 81 MG
  2. PROSCAR [Suspect]
     Active Substance: FINASTERIDE
     Indication: PROSTATISM
     Dosage: 10 MG, ONCE
     Route: 048
     Dates: start: 2004, end: 2004
  3. PROSCAR [Suspect]
     Active Substance: FINASTERIDE
     Dosage: 5 MG, QD
     Route: 048
     Dates: start: 200403
  4. SYNTHROID [Concomitant]
     Active Substance: LEVOTHYROXINE SODIUM
     Dosage: 0.1 MG

REACTIONS (4)
  - Accidental overdose [Unknown]
  - Blood pressure decreased [Unknown]
  - Generalised tonic-clonic seizure [Unknown]
  - Arrhythmia [Unknown]

NARRATIVE: CASE EVENT DATE: 2004
